FAERS Safety Report 7009085-X (Version None)
Quarter: 2010Q3

REPORT INFORMATION
  Report Type: 
  Country: None (occurrence: None)
  Receive Date: 20100923
  Receipt Date: 20100916
  Transmission Date: 20110219
  Serious: Yes (Death)
  Sender: FDA-Public Use
  Company Number: JP-BAYER-201011179BYL

PATIENT
  Age: 58 Year
  Sex: Female
  Weight: 70 kg

DRUGS (13)
  1. NEXAVAR [Suspect]
     Indication: METASTATIC RENAL CELL CARCINOMA
     Dosage: TOTAL DAILY DOSE: 800 MG  UNIT DOSE: 200 MG
     Route: 048
     Dates: start: 20100129
  2. INTERFERON [Suspect]
     Indication: RENAL CELL CARCINOMA
     Dosage: TOTAL DAILY DOSE: 3 MIU
     Route: 042
     Dates: start: 20100113, end: 20100223
  3. RESLIN [Suspect]
     Indication: INSOMNIA
     Dosage: TOTAL DAILY DOSE: 25 MG  UNIT DOSE: 25 MG
     Route: 048
     Dates: start: 20100223, end: 20100307
  4. DIOVAN [Concomitant]
     Indication: BLOOD PRESSURE INCREASED
     Dosage: TOTAL DAILY DOSE: 80 MG  UNIT DOSE: 80 MG
     Route: 048
     Dates: start: 20100203
  5. ADALAT CC [Concomitant]
     Indication: BLOOD PRESSURE INCREASED
     Dosage: TOTAL DAILY DOSE: 20 MG  UNIT DOSE: 20 MG
     Route: 048
     Dates: start: 20100208
  6. SEVOFLURANE [Concomitant]
     Indication: ANAESTHESIA PROCEDURE
     Route: 065
     Dates: start: 20091204, end: 20091204
  7. FLURBIPROFEN [Concomitant]
     Indication: ANAESTHESIA PROCEDURE
     Route: 065
     Dates: start: 20091204, end: 20091204
  8. ESLAX [Concomitant]
     Indication: ANAESTHESIA PROCEDURE
     Route: 065
     Dates: start: 20091204, end: 20091204
  9. PROPOFOL [Concomitant]
     Indication: ANAESTHESIA PROCEDURE
     Dosage: UNIT DOSE: 1 %
     Route: 065
     Dates: start: 20091204, end: 20091204
  10. FENTANYL CITRATE [Concomitant]
     Indication: ANAESTHESIA PROCEDURE
     Route: 065
     Dates: start: 20091204, end: 20091204
  11. ULTIVA [Concomitant]
     Indication: ANAESTHESIA PROCEDURE
     Route: 065
     Dates: start: 20091204, end: 20091204
  12. DORMICUM [Concomitant]
     Indication: ANAESTHESIA PROCEDURE
     Route: 065
     Dates: start: 20091204, end: 20091204
  13. X-RAY CONTRAST AGENTS [Concomitant]
     Indication: COMPUTERISED TOMOGRAM
     Route: 042
     Dates: start: 20100108, end: 20100108

REACTIONS (1)
  - DEATH [None]
